FAERS Safety Report 5128023-8 (Version None)
Quarter: 2006Q4

REPORT INFORMATION
  Report Type: 
  Country: None (occurrence: None)
  Receive Date: 20061013
  Receipt Date: 20061013
  Transmission Date: 20070319
  Serious: Yes (Hospitalization)
  Sender: FDA-Public Use
  Company Number: None

PATIENT
  Age: 1 Day
  Sex: Male
  Weight: 3 kg

DRUGS (1)
  1. METFORMIN HCL [Suspect]
     Indication: POLYCYSTIC OVARIES
     Dosage: 500MG BID PO
     Route: 048

REACTIONS (2)
  - DRUG EXPOSURE DURING PREGNANCY [None]
  - HYPOGLYCAEMIA [None]
